FAERS Safety Report 6746032-X (Version None)
Quarter: 2010Q2

REPORT INFORMATION
  Report Type: 
  Country: None (occurrence: None)
  Receive Date: 20100528
  Receipt Date: 20100517
  Transmission Date: 20101027
  Serious: Yes (Hospitalization, Other)
  Sender: FDA-Public Use
  Company Number: US-ELI_LILLY_AND_COMPANY-US201004003653

PATIENT
  Sex: Female

DRUGS (4)
  1. FORTEO [Suspect]
     Indication: OSTEOPOROSIS
     Dosage: 20 UG, UNK
     Dates: start: 20100202
  2. ELAVIL [Concomitant]
     Indication: INSOMNIA
     Dosage: 50 MG, UNKNOWN
  3. PLENDIL [Concomitant]
     Indication: HYPERTENSION
     Dosage: 5 MG, UNKNOWN
  4. SIMVASTATIN [Concomitant]
     Indication: BLOOD CHOLESTEROL INCREASED
     Dosage: 20 MG, UNKNOWN

REACTIONS (4)
  - DEEP VEIN THROMBOSIS [None]
  - JOINT INJURY [None]
  - MALAISE [None]
  - MUSCLE SPASMS [None]
